FAERS Safety Report 13297039 (Version 1)
Quarter: 2017Q1

REPORT INFORMATION
  Report Type: Spontaneous
  Country: US (occurrence: US)
  Receive Date: 20170303
  Receipt Date: 20170303
  Transmission Date: 20170428
  Serious: Yes (Other)
  Sender: FDA-Public Use
  Company Number: None

PATIENT
  Age: 51 Year
  Sex: Female

DRUGS (1)
  1. COPAXONE [Suspect]
     Active Substance: GLATIRAMER ACETATE
     Indication: GENERAL SYMPTOM
     Dosage: 40 MG THREE TIMES A WEEK SQ
     Route: 058
     Dates: start: 20160830

REACTIONS (2)
  - Dyspnoea [None]
  - Swelling [None]

NARRATIVE: CASE EVENT DATE: 20170207
